FAERS Safety Report 10210849 (Version 3)
Quarter: 2014Q3

REPORT INFORMATION
  Report Type: Spontaneous
  Country: US (occurrence: US)
  Receive Date: 20140602
  Receipt Date: 20140703
  Transmission Date: 20150326
  Serious: No
  Sender: FDA-Public Use
  Company Number: US-009507513-1405USA015722

PATIENT
  Age: 27 Year
  Sex: Male
  Weight: 153.11 kg

DRUGS (5)
  1. PEGINTRON [Suspect]
     Active Substance: PEGINTERFERON ALFA-2B
     Dosage: REDIPEN, 150 MCG, 0.5 ML / 150 MCG WEEKLY
     Route: 058
     Dates: start: 201406, end: 201406
  2. PEGINTRON [Suspect]
     Active Substance: PEGINTERFERON ALFA-2B
     Dosage: REDIPEN, ONCE A WEEK
     Dates: start: 201406
  3. PEGINTRON [Suspect]
     Active Substance: PEGINTERFERON ALFA-2B
     Dosage: REDIPEN, 150 MCG, 0.5 ML / 150 MCG WEEKLY
     Route: 058
     Dates: start: 201406, end: 201406
  4. PEGINTRON [Suspect]
     Active Substance: PEGINTERFERON ALFA-2B
     Indication: HEPATITIS C
     Dosage: REDIPEN, ONCE A WEEK
  5. PEGINTRON [Suspect]
     Active Substance: PEGINTERFERON ALFA-2B
     Dosage: REDIPEN, 150 MCG, 0.5 ML / 150 MCG WEEKLY
     Route: 058
     Dates: start: 201406, end: 201406

REACTIONS (5)
  - Drug dose omission [Unknown]
  - Product quality issue [Unknown]
  - Accidental exposure to product [Unknown]
  - No adverse event [Unknown]
  - Drug dose omission [Unknown]

NARRATIVE: CASE EVENT DATE: 201406
